FAERS Safety Report 4406745-1 (Version None)
Quarter: 2004Q3

REPORT INFORMATION
  Report Type: 
  Country: None (occurrence: None)
  Receive Date: 20040715
  Receipt Date: 20040701
  Transmission Date: 20050211
  Serious: Yes (Death)
  Sender: FDA-Public Use
  Company Number: 2003SE04673

PATIENT
  Age: 84 Year
  Sex: Female

DRUGS (2)
  1. XYLOCAINE W/ EPINEPHRENE [Suspect]
     Indication: LOCAL ANAESTHESIA
     Dates: start: 20030518
  2. NAROPIN [Suspect]
     Indication: LOCAL ANAESTHESIA
     Dates: start: 20030518

REACTIONS (9)
  - AORTIC STENOSIS [None]
  - ARRHYTHMIA [None]
  - CARDIAC DEATH [None]
  - CARDIOMEGALY [None]
  - CIRCULATORY COLLAPSE [None]
  - CORONARY ARTERY ATHEROSCLEROSIS [None]
  - MEDICATION ERROR [None]
  - MUSCLE CRAMP [None]
  - TACHYCARDIA [None]
